FAERS Safety Report 21996479 (Version 3)
Quarter: 2023Q1

REPORT INFORMATION
  Report Type: Spontaneous
  Country: ES (occurrence: ES)
  Receive Date: 20230215
  Receipt Date: 20230314
  Transmission Date: 20230418
  Serious: Yes (Hospitalization, Other)
  Sender: FDA-Public Use
  Company Number: None

PATIENT
  Age: 60 Year
  Sex: Male
  Weight: 61.5 kg

DRUGS (11)
  1. BORTEZOMIB [Suspect]
     Active Substance: BORTEZOMIB
     Indication: Plasma cell myeloma
     Dosage: 1 3 MG/M2  SYRINGE IN WEEKLY CYCLES
     Route: 042
     Dates: start: 20230116, end: 20230123
  2. LENALIDOMIDE [Suspect]
     Active Substance: LENALIDOMIDE
     Indication: Plasma cell myeloma
     Dosage: 25 MILLIGRAM, 1 DOSE PER 24HR
     Route: 048
     Dates: start: 20230116, end: 20230123
  3. ACYCLOVIR [Suspect]
     Active Substance: ACYCLOVIR
     Indication: Prophylaxis
     Dosage: 800 MILLIGRAM, 1 DOSE PER 24HR?1-0-0
     Route: 048
     Dates: start: 20230103, end: 20230126
  4. SULFAMETHOXAZOLE\TRIMETHOPRIM [Suspect]
     Active Substance: SULFAMETHOXAZOLE\TRIMETHOPRIM
     Indication: Prophylaxis
     Dosage: 2 DOSAGE FORM, 1 DOSE PER 1W
     Route: 048
     Dates: start: 20230116, end: 20230123
  5. LANTUS [Concomitant]
     Active Substance: INSULIN GLARGINE
     Indication: Diabetes mellitus
  6. LANTUS [Concomitant]
     Active Substance: INSULIN GLARGINE
     Dosage: UNK
  7. LANTUS [Concomitant]
     Active Substance: INSULIN GLARGINE
  8. Adiro 100 MG EFG GASTRO-RESISTANT TABLETS [Concomitant]
     Indication: Product used for unknown indication
     Dosage: UNK
  9. Adiro 100 MG EFG GASTRO-RESISTANT TABLETS [Concomitant]
  10. VOKANAMET 50 MG/1000 MG FILM-COATED TABLET [Concomitant]
     Indication: Diabetes mellitus
     Dosage: UNK
  11. HYDROCHLOROTHIAZIDE\OLMESARTAN MEDOXOMIL [Concomitant]
     Active Substance: HYDROCHLOROTHIAZIDE\OLMESARTAN MEDOXOMIL
     Indication: Hypertension
     Dosage: UNK

REACTIONS (1)
  - Acute kidney injury [Recovered/Resolved]

NARRATIVE: CASE EVENT DATE: 20230125
